FAERS Safety Report 26069011 (Version 2)
Quarter: 2025Q4

REPORT INFORMATION
  Report Type: Spontaneous
  Country: EU (occurrence: EU)
  Receive Date: 20251120
  Receipt Date: 20251203
  Transmission Date: 20260118
  Serious: Yes (Other)
  Sender: BAXTER
  Company Number: EU-MYLANLABS-2025M1091516

PATIENT
  Age: 60 Year
  Sex: Female

DRUGS (8)
  1. DOXORUBICIN [Suspect]
     Active Substance: DOXORUBICIN
     Indication: HER2 positive breast cancer
     Dosage: UNK
     Route: 065
  2. ZOLEDRONIC ACID [Suspect]
     Active Substance: ZOLEDRONIC ACID
     Indication: HER2 positive breast cancer
     Dosage: UNK
     Route: 065
  3. FULVESTRANT [Suspect]
     Active Substance: FULVESTRANT
     Indication: HER2 positive breast cancer
     Dosage: UNK
     Route: 065
  4. PALBOCICLIB [Suspect]
     Active Substance: PALBOCICLIB
     Indication: HER2 positive breast cancer
     Dosage: UNK
     Route: 065
     Dates: start: 2020
  5. EXEMESTANE [Suspect]
     Active Substance: EXEMESTANE
     Indication: HER2 positive breast cancer
     Dosage: UNK
     Route: 065
  6. EVEROLIMUS [Suspect]
     Active Substance: EVEROLIMUS
     Indication: HER2 positive breast cancer
     Dosage: UNK
     Route: 065
  7. TALAZOPARIB [Suspect]
     Active Substance: TALAZOPARIB
     Indication: HER2 positive breast cancer
     Dosage: UNK
     Route: 065
  8. TRASTUZUMAB DERUXTECAN [Concomitant]
     Active Substance: TRASTUZUMAB DERUXTECAN
     Indication: HER2 positive breast cancer
     Dosage: FOUR SESSIONS
     Route: 065
     Dates: start: 202410

REACTIONS (4)
  - Metastases to liver [Unknown]
  - Disease progression [Unknown]
  - Metastases to skin [Unknown]
  - Skin lesion [Unknown]
